FAERS Safety Report 6470874-1 (Version None)
Quarter: 2009Q4

REPORT INFORMATION
  Report Type: 
  Country: None (occurrence: None)
  Receive Date: 20091203
  Receipt Date: 20080110
  Transmission Date: 20100525
  Serious: Yes (Other)
  Sender: FDA-Public Use
  Company Number: US-ELI_LILLY_AND_COMPANY-US200801002282

PATIENT
  Sex: Female
  Weight: 45.351 kg

DRUGS (2)
  1. CYMBALTA [Suspect]
     Indication: SMOKING CESSATION THERAPY
     Dates: start: 20070101
  2. LYRICA [Concomitant]
     Indication: FIBROMYALGIA
     Dates: start: 20070101

REACTIONS (4)
  - INCOHERENT [None]
  - LOSS OF CONSCIOUSNESS [None]
  - SOMNOLENCE [None]
  - WEIGHT INCREASED [None]
